FAERS Safety Report 19824759 (Version 1)
Quarter: 2021Q3

REPORT INFORMATION
  Report Type: Report from Study
  Country: US (occurrence: US)
  Receive Date: 20210914
  Receipt Date: 20210914
  Transmission Date: 20211014
  Serious: No
  Sender: FDA-Public Use
  Company Number: US-ACADIA PHARMACEUTICALS INC.-ACA-2021-PIM-003070

PATIENT
  Age: 83 Year
  Sex: Male
  Weight: 66.6 kg

DRUGS (6)
  1. NUPLAZID [Suspect]
     Active Substance: PIMAVANSERIN TARTRATE
     Indication: HALLUCINATION
     Dosage: TOOK TWO CAPSULES
     Dates: start: 20210817, end: 20210817
  2. VITAMIN [Concomitant]
     Active Substance: VITAMINS
  3. NUPLAZID [Suspect]
     Active Substance: PIMAVANSERIN TARTRATE
     Indication: DELUSION
     Dosage: 34 MILLIGRAM, QD
     Route: 065
     Dates: start: 202108
  4. CARBIDOPA. [Concomitant]
     Active Substance: CARBIDOPA
     Dosage: ONE IN THE MORNING AND ONE AT BEDTIME
  5. BABY ASPIRIN [Concomitant]
     Active Substance: ASPIRIN
  6. NUPLAZID [Suspect]
     Active Substance: PIMAVANSERIN TARTRATE
     Indication: PARKINSON^S DISEASE PSYCHOSIS
     Dosage: 34 MILLIGRAM, QD
     Route: 048
     Dates: start: 202108

REACTIONS (7)
  - Parkinson^s disease [Unknown]
  - Lip injury [Recovering/Resolving]
  - Therapeutic response unexpected [Unknown]
  - Weight decreased [Unknown]
  - Fall [Recovering/Resolving]
  - Accidental overdose [Unknown]
  - COVID-19 [Unknown]

NARRATIVE: CASE EVENT DATE: 20210817
